FAERS Safety Report 4519175-9 (Version None)
Quarter: 2004Q4

REPORT INFORMATION
  Report Type: 
  Country: None (occurrence: None)
  Receive Date: 20041206
  Receipt Date: 20041201
  Transmission Date: 20050328
  Serious: Yes (Other)
  Sender: FDA-Public Use
  Company Number: BE-ROCHE-387692

PATIENT
  Age: 55 Year
  Sex: Male

DRUGS (3)
  1. TICLID [Suspect]
     Dosage: SECONDARY REPORTED INDICATION: CORONARY STENT PLACEMENT
     Route: 048
     Dates: end: 20040615
  2. BETA BLOCKERS [Concomitant]
  3. ACE INHIBITORS [Concomitant]

REACTIONS (1)
  - HEPATITIS CHOLESTATIC [None]
